FAERS Safety Report 9506749 (Version 2)
Quarter: 2013Q3

REPORT INFORMATION
  Report Type: Spontaneous
  Country: JP (occurrence: JP)
  Receive Date: 20130909
  Receipt Date: 20130909
  Transmission Date: 20140515
  Serious: Yes (Hospitalization)
  Sender: FDA-Public Use
  Company Number: JP-AMGEN-JPNSP2013054761

PATIENT
  Age: 81 Year
  Sex: Male
  Weight: 56 kg

DRUGS (1)
  1. VECTIBIX [Suspect]
     Indication: PRODUCT USED FOR UNKNOWN INDICATION
     Dosage: 358.79 MG, Q2WK
     Route: 041
     Dates: start: 20130624, end: 20130624

REACTIONS (1)
  - Infusion related reaction [Recovering/Resolving]
